FAERS Safety Report 23878035 (Version 1)
Quarter: 2024Q2

REPORT INFORMATION
  Report Type: Spontaneous
  Country: US (occurrence: US)
  Receive Date: 20240521
  Receipt Date: 20240521
  Transmission Date: 20240715
  Serious: No
  Sender: FDA-Public Use
  Company Number: US-BAYER-2024A073134

PATIENT
  Age: 71 Year
  Sex: Female

DRUGS (1)
  1. MIRALAX [Suspect]
     Active Substance: POLYETHYLENE GLYCOL 3350
     Indication: Abdominal pain upper
     Dosage: 1 DF, OM
     Route: 048
     Dates: start: 20240517, end: 20240517

REACTIONS (4)
  - Erythema [Unknown]
  - Pruritus [None]
  - Burning sensation [None]
  - Off label use [None]

NARRATIVE: CASE EVENT DATE: 20240517
